FAERS Safety Report 8538134-2 (Version None)
Quarter: 2012Q3

REPORT INFORMATION
  Report Type: 
  Country: None (occurrence: None)
  Receive Date: 20120725
  Receipt Date: 20120717
  Transmission Date: 20120928
  Serious: Yes (Hospitalization)
  Sender: FDA-Public Use
  Company Number: IT-ABBOTT-12P-083-0947904-00

PATIENT
  Sex: Male

DRUGS (5)
  1. DEPAKENE [Suspect]
     Indication: SUICIDE ATTEMPT
     Route: 048
     Dates: start: 20110116, end: 20110116
  2. EN [Suspect]
     Indication: SUICIDE ATTEMPT
     Dosage: TOTAL
     Route: 048
     Dates: start: 20110116, end: 20110116
  3. LITHIUM CARBONATE [Concomitant]
     Indication: PRODUCT USED FOR UNKNOWN INDICATION
     Route: 048
  4. ANAFRANIL [Concomitant]
     Indication: PRODUCT USED FOR UNKNOWN INDICATION
     Route: 048
  5. ZYPREXA [Concomitant]
     Indication: PRODUCT USED FOR UNKNOWN INDICATION
     Route: 048

REACTIONS (3)
  - TACHYCARDIA [None]
  - INTENTIONAL OVERDOSE [None]
  - SUICIDE ATTEMPT [None]
